FAERS Safety Report 6055614-2 (Version None)
Quarter: 2009Q1

REPORT INFORMATION
  Report Type: 
  Country: None (occurrence: None)
  Receive Date: 20090123
  Receipt Date: 20090114
  Transmission Date: 20090719
  Serious: Yes (Other)
  Sender: FDA-Public Use
  Company Number: DSA_33094_2009

PATIENT
  Sex: Female

DRUGS (4)
  1. VASOTEC [Suspect]
     Indication: SYSTOLIC HYPERTENSION
     Dosage: 2.5 MG, 5 MG QD
     Dates: start: 20090101, end: 20090101
  2. DIURETICS [Concomitant]
  3. CRESTOR [Concomitant]
  4. MULTI-VITAMIN [Concomitant]

REACTIONS (4)
  - BLOOD PRESSURE FLUCTUATION [None]
  - BLOOD PRESSURE INADEQUATELY CONTROLLED [None]
  - DIZZINESS [None]
  - FATIGUE [None]
